FAERS Safety Report 8594247-0 (Version None)
Quarter: 2012Q3

REPORT INFORMATION
  Report Type: 
  Country: None (occurrence: None)
  Receive Date: 20120814
  Receipt Date: 20120809
  Transmission Date: 20120928
  Serious: Yes (Hospitalization)
  Sender: FDA-Public Use
  Company Number: IE-MERCK-1208IRL005087

PATIENT

DRUGS (8)
  1. JANUMET [Suspect]
     Indication: DIABETES MELLITUS
     Dosage: 50MG/1000MG
     Route: 048
  2. PROTELOS [Concomitant]
  3. GLICLAZIDE [Concomitant]
     Dosage: 90 MG, UNK
  4. CALCIUM CARBONATE [Concomitant]
  5. LANSOPRAZOLE [Suspect]
     Dosage: 30 MG, UNK
  6. JANUMET [Suspect]
     Indication: HYPERTENSION
  7. RAMIPRIL [Suspect]
     Dosage: 10 MG, QD
     Route: 048
  8. ASPIRIN [Concomitant]
     Dosage: 75 MG, QD

REACTIONS (2)
  - PANCREATIC NECROSIS [None]
  - PANCREATITIS [None]
